FAERS Safety Report 4771510-2 (Version None)
Quarter: 2005Q3

REPORT INFORMATION
  Report Type: 
  Country: None (occurrence: None)
  Receive Date: 20050913
  Receipt Date: 20050913
  Transmission Date: 20060218
  Serious: Yes (Life-Threatening)
  Sender: FDA-Public Use
  Company Number: None

PATIENT
  Age: 30 Year
  Sex: Male
  Weight: 194 kg

DRUGS (1)
  1. CETACAINE [Suspect]
     Indication: INTUBATION
     Dates: start: 20050912, end: 20050912

REACTIONS (3)
  - BLOOD METHAEMOGLOBIN PRESENT [None]
  - PCO2 INCREASED [None]
  - PO2 INCREASED [None]
